FAERS Safety Report 5953301-X (Version None)
Quarter: 2008Q4

REPORT INFORMATION
  Report Type: 
  Country: None (occurrence: None)
  Receive Date: 20081114
  Receipt Date: 20081109
  Transmission Date: 20090506
  Serious: Yes (Death, Life-Threatening, Hospitalization, Other)
  Sender: FDA-Public Use
  Company Number: PHHY2008CN27621

PATIENT

DRUGS (1)
  1. SEBIVO [Suspect]
     Indication: HEPATITIS B
     Dosage: UNK
     Route: 048
     Dates: start: 20080101, end: 20081001

REACTIONS (34)
  - ACUTE RESPIRATORY FAILURE [None]
  - ANURIA [None]
  - BLOOD POTASSIUM DECREASED [None]
  - BLOOD PRESSURE DECREASED [None]
  - CARDIAC FAILURE [None]
  - CHEST X-RAY ABNORMAL [None]
  - COAGULOPATHY [None]
  - COMA [None]
  - CONDITION AGGRAVATED [None]
  - CONFUSIONAL STATE [None]
  - COUGH [None]
  - DYSPNOEA [None]
  - FATIGUE [None]
  - GASTRITIS [None]
  - GASTROOESOPHAGEAL REFLUX DISEASE [None]
  - HAEMOPTYSIS [None]
  - HEART RATE INCREASED [None]
  - LUNG INFECTION [None]
  - METABOLIC ACIDOSIS [None]
  - MULTI-ORGAN FAILURE [None]
  - NAUSEA [None]
  - PALPITATIONS [None]
  - PLEURAL EFFUSION [None]
  - POISONING [None]
  - PULMONARY OEDEMA [None]
  - RALES [None]
  - RENAL FAILURE ACUTE [None]
  - RESPIRATORY RATE INCREASED [None]
  - RESTLESSNESS [None]
  - RHABDOMYOLYSIS [None]
  - SPUTUM DISCOLOURED [None]
  - URINE KETONE BODY PRESENT [None]
  - VOMITING [None]
  - WHITE BLOOD CELL COUNT INCREASED [None]
